FAERS Safety Report 5760661-1 (Version None)
Quarter: 2008Q2

REPORT INFORMATION
  Report Type: 
  Country: None (occurrence: None)
  Receive Date: 20080606
  Receipt Date: 20080529
  Transmission Date: 20081010
  Serious: Yes (Death, Hospitalization, Other)
  Sender: FDA-Public Use
  Company Number: PT-JNJFOC-20080600915

PATIENT
  Sex: Male
  Weight: 52 kg

DRUGS (3)
  1. REOPRO [Suspect]
     Indication: DRUG USE FOR UNKNOWN INDICATION
  2. PLAVIX [Concomitant]
     Indication: ACUTE MYOCARDIAL INFARCTION
  3. ACETYLSALICYLIC ACID SRT [Concomitant]

REACTIONS (3)
  - DEATH [None]
  - EPISTAXIS [None]
  - UPPER GASTROINTESTINAL HAEMORRHAGE [None]
